FAERS Safety Report 18513311 (Version 1)
Quarter: 2020Q4

REPORT INFORMATION
  Report Type: Other
  Country: JP (occurrence: JP)
  Receive Date: 20201118
  Receipt Date: 20201118
  Transmission Date: 20210114
  Serious: Yes (Hospitalization, Other)
  Sender: FDA-Public Use
  Company Number: JP-ROCHE-2714401

PATIENT
  Age: 7 Decade
  Sex: Male

DRUGS (2)
  1. DOCETAXEL. [Concomitant]
     Active Substance: DOCETAXEL
     Indication: GASTRIC CANCER
  2. HERCEPTIN [Suspect]
     Active Substance: TRASTUZUMAB
     Indication: GASTRIC CANCER
     Route: 041

REACTIONS (3)
  - Sepsis [Unknown]
  - Metastases to bladder [Unknown]
  - Disseminated intravascular coagulation [Unknown]
